FAERS Safety Report 24767447 (Version 1)
Quarter: 2024Q4

REPORT INFORMATION
  Report Type: Spontaneous
  Country: US (occurrence: None)
  Receive Date: 20241221
  Receipt Date: 20241221
  Transmission Date: 20250114
  Serious: No
  Sender: Public
  Company Number: None

PATIENT
  Age: 37 Year
  Sex: Male
  Weight: 96.75 kg

DRUGS (7)
  1. CAPLYTA [Suspect]
     Active Substance: LUMATEPERONE
     Indication: Bipolar II disorder
     Dosage: 1 CAPSULE DAILY ORAL
     Route: 048
     Dates: start: 20241220
  2. LAMOTRIGINE [Concomitant]
     Active Substance: LAMOTRIGINE
  3. DEXTROAMPHETAMINE [Concomitant]
     Active Substance: DEXTROAMPHETAMINE
  4. AMPHETAMINE [Concomitant]
     Active Substance: AMPHETAMINE
  5. DEVICE [Concomitant]
     Active Substance: DEVICE
  6. VITAMINS [Concomitant]
     Active Substance: VITAMINS
  7. ALLEGRA [Concomitant]
     Active Substance: FEXOFENADINE HYDROCHLORIDE

REACTIONS (15)
  - Terminal insomnia [None]
  - Chills [None]
  - Dry mouth [None]
  - Dizziness [None]
  - Coordination abnormal [None]
  - Brain fog [None]
  - Slow speech [None]
  - Slow response to stimuli [None]
  - Palpitations [None]
  - Impaired work ability [None]
  - Gait inability [None]
  - Hypersomnia [None]
  - Headache [None]
  - Memory impairment [None]
  - Bradyphrenia [None]

NARRATIVE: CASE EVENT DATE: 20241220
